FAERS Safety Report 5684333-7 (Version None)
Quarter: 2008Q1

REPORT INFORMATION
  Report Type: 
  Country: None (occurrence: None)
  Receive Date: 20080328
  Receipt Date: 20080326
  Transmission Date: 20080703
  Serious: Yes (Life-Threatening)
  Sender: FDA-Public Use
  Company Number: B0501021A

PATIENT
  Age: 61 Year
  Sex: Female
  Weight: 45 kg

DRUGS (5)
  1. VALTREX [Suspect]
     Indication: HERPES ZOSTER
     Dosage: 1000MG THREE TIMES PER DAY
     Route: 048
     Dates: start: 20071114, end: 20071118
  2. CYANOCOBALAMIN [Concomitant]
     Indication: HERPES ZOSTER
     Dosage: 1500MG PER DAY
     Route: 048
     Dates: start: 20071114, end: 20071118
  3. LENDORMIN [Concomitant]
     Indication: INSOMNIA
     Dosage: .25MG PER DAY
     Route: 048
     Dates: start: 20010409
  4. PERDIPINE LA [Concomitant]
     Indication: HYPERTENSION
     Dosage: 80MG PER DAY
     Route: 048
     Dates: start: 19940511
  5. MEVALOTIN [Concomitant]
     Dosage: 10MG PER DAY
     Route: 048
     Dates: start: 20010417

REACTIONS (4)
  - BLOOD CREATININE INCREASED [None]
  - BLOOD UREA INCREASED [None]
  - MALAISE [None]
  - RENAL FAILURE ACUTE [None]
